FAERS Safety Report 13047961 (Version 1)
Quarter: 2016Q4

REPORT INFORMATION
  Report Type: Spontaneous
  Country: IT (occurrence: IT)
  Receive Date: 20161220
  Receipt Date: 20161220
  Transmission Date: 20170207
  Serious: Yes (Other)
  Sender: FDA-Public Use
  Company Number: IT-PFIZER INC-2016583721

PATIENT
  Age: 47 Year
  Sex: Female

DRUGS (1)
  1. LORAZEPAM. [Suspect]
     Active Substance: LORAZEPAM
     Dosage: UNK

REACTIONS (3)
  - Somnolence [Recovered/Resolved with Sequelae]
  - Suicide attempt [Recovered/Resolved with Sequelae]
  - Intentional product misuse [Recovered/Resolved with Sequelae]
